FAERS Safety Report 6611424-6 (Version None)
Quarter: 2010Q1

REPORT INFORMATION
  Report Type: 
  Country: None (occurrence: None)
  Receive Date: 20100303
  Receipt Date: 20100222
  Transmission Date: 20100710
  Serious: Yes (Death, Hospitalization, Other)
  Sender: FDA-Public Use
  Company Number: AE-GENZYME-POMP-1000860

PATIENT
  Sex: Male
  Weight: 10.5 kg

DRUGS (1)
  1. MYOZYME [Suspect]
     Indication: GLYCOGEN STORAGE DISEASE TYPE II
     Dosage: UNK
     Route: 042
     Dates: start: 20080526, end: 20091207

REACTIONS (10)
  - CYANOSIS [None]
  - DISEASE PROGRESSION [None]
  - DRUG INEFFECTIVE [None]
  - DYSPHAGIA [None]
  - DYSPNOEA [None]
  - GLYCOGEN STORAGE DISEASE TYPE II [None]
  - HYPOTONIA [None]
  - INFUSION RELATED REACTION [None]
  - LUNG INFECTION [None]
  - VOMITING [None]
